FAERS Safety Report 25825411 (Version 1)
Quarter: 2025Q3

REPORT INFORMATION
  Report Type: Spontaneous
  Country: IN (occurrence: IN)
  Receive Date: 20250919
  Receipt Date: 20250919
  Transmission Date: 20251020
  Serious: Yes (Other)
  Sender: AMGEN
  Company Number: IN-AMGEN-INDSP2025181531

PATIENT
  Age: 40 Day
  Sex: Male
  Weight: 2.84 kg

DRUGS (5)
  1. CINACALCET HYDROCHLORIDE [Suspect]
     Active Substance: CINACALCET HYDROCHLORIDE
     Indication: Hypercalcaemia
     Dosage: 0.5 MILLIGRAM/KILOGRAM, QD, TABLET, THREE DIVIDED DOSES WERE GIVEN
     Route: 065
  2. SALINE [Concomitant]
     Active Substance: SODIUM CHLORIDE
  3. FUROSEMIDE [Concomitant]
     Active Substance: FUROSEMIDE
  4. CALCITONIN [Concomitant]
     Active Substance: CALCITONIN
     Dosage: UNK UNK, Q12H, 4 U KG-1
     Route: 058
  5. PAMIDRONATE DISODIUM [Concomitant]
     Active Substance: PAMIDRONATE DISODIUM
     Indication: Hypercalcaemia
     Route: 040

REACTIONS (4)
  - Parathyroid tumour benign [Unknown]
  - Hypercalcaemia [Unknown]
  - Drug ineffective [Unknown]
  - Off label use [Unknown]
